FAERS Safety Report 9847161 (Version 3)
Quarter: 2015Q1

REPORT INFORMATION
  Report Type: Spontaneous
  Country: US (occurrence: US)
  Receive Date: 20140127
  Receipt Date: 20150120
  Transmission Date: 20150721
  Serious: Yes (Hospitalization, Other)
  Sender: FDA-Public Use
  Company Number: US-009507513-1401USA011462

PATIENT
  Sex: Female
  Weight: 99.77 kg

DRUGS (1)
  1. NUVARING [Suspect]
     Active Substance: ETHINYL ESTRADIOL\ETONOGESTREL
     Indication: CONTRACEPTION
     Dosage: UNK
     Route: 067
     Dates: start: 201212, end: 20130218

REACTIONS (7)
  - Nausea [Unknown]
  - Constipation [Unknown]
  - Post-traumatic stress disorder [Unknown]
  - Pulmonary embolism [Unknown]
  - Back pain [Unknown]
  - Blood magnesium decreased [Unknown]
  - Contusion [Unknown]

NARRATIVE: CASE EVENT DATE: 20130203
